FAERS Safety Report 9031668 (Version 1)
Quarter: 2013Q1

REPORT INFORMATION
  Report Type: Spontaneous
  Country: EC (occurrence: EC)
  Receive Date: 20130124
  Receipt Date: 20130124
  Transmission Date: 20140127
  Serious: Yes (Other)
  Sender: FDA-Public Use
  Company Number: PHHY2013EC005930

PATIENT
  Sex: Male

DRUGS (1)
  1. DIOVAN HCT [Suspect]
     Dosage: 1 DF (80 UNITS OF VALS AND 12.5 UNITS OF HYDRO)
     Route: 048
     Dates: start: 20120110, end: 201211

REACTIONS (3)
  - Thrombosis [Unknown]
  - Facial spasm [Unknown]
  - Hypertension [Unknown]
